FAERS Safety Report 23885082 (Version 2)
Quarter: 2024Q2

REPORT INFORMATION
  Report Type: Report from Study
  Country: CH (occurrence: CH)
  Receive Date: 20240522
  Receipt Date: 20240609
  Transmission Date: 20240716
  Serious: Yes (Hospitalization)
  Sender: FDA-Public Use
  Company Number: CH-002147023-NVSC2024CH090494

PATIENT
  Sex: Male

DRUGS (3)
  1. KESIMPTA [Suspect]
     Active Substance: OFATUMUMAB
     Indication: Multiple sclerosis
     Dosage: 20 MG, QMO
     Route: 058
     Dates: start: 20220601
  2. SYMBICORT [Concomitant]
     Active Substance: BUDESONIDE\FORMOTEROL FUMARATE DIHYDRATE
     Indication: Product used for unknown indication
     Dosage: UNK, PRN (IF NECESSARY)
     Route: 065
  3. VENTOLIN [Concomitant]
     Active Substance: ALBUTEROL SULFATE
     Indication: Product used for unknown indication
     Dosage: UNK, PRN (IF NECESSARY)
     Route: 065

REACTIONS (5)
  - Respiratory tract infection [Recovering/Resolving]
  - Pyrexia [Recovering/Resolving]
  - Haemoptysis [Recovering/Resolving]
  - Pneumonia [Recovering/Resolving]
  - Pulmonary cavitation [Recovering/Resolving]

NARRATIVE: CASE EVENT DATE: 20240330
